FAERS Safety Report 5916897-X (Version None)
Quarter: 2008Q3

REPORT INFORMATION
  Report Type: 
  Country: None (occurrence: None)
  Receive Date: 20080909
  Receipt Date: 20080214
  Transmission Date: 20090109
  Serious: Yes (Hospitalization, Other)
  Sender: FDA-Public Use
  Company Number: 163-20785-08010216

PATIENT
  Age: 56 Year
  Sex: Male

DRUGS (6)
  1. THALOMID [Suspect]
     Indication: MULTIPLE MYELOMA
     Dosage: 50 MG, QD, ORAL ; 200 - 100 MG, QD, ORAL
     Route: 048
     Dates: start: 20021028
  2. THALOMID [Suspect]
     Indication: MULTIPLE MYELOMA
     Dosage: 50 MG, QD, ORAL ; 200 - 100 MG, QD, ORAL
     Route: 048
     Dates: start: 20031124
  3. ERYTHROPOETIN (EPOETIN ALFA) [Concomitant]
  4. WARFARIN SODIUM [Concomitant]
  5. FLORINEF [Concomitant]
  6. DECADRON [Concomitant]

REACTIONS (5)
  - CONVULSION [None]
  - COUGH [None]
  - HYPOTENSION [None]
  - ORTHOSTATIC HYPOTENSION [None]
  - SYNCOPE [None]
